FAERS Safety Report 4688760-6 (Version None)
Quarter: 2005Q2

REPORT INFORMATION
  Report Type: 
  Country: None (occurrence: None)
  Receive Date: 20050610
  Receipt Date: 20050610
  Transmission Date: 20051028
  Serious: No
  Sender: FDA-Public Use
  Company Number: None

PATIENT
  Age: 67 Year
  Sex: Female
  Weight: 106.5953 kg

DRUGS (4)
  1. FENTANYL [Suspect]
     Indication: POST LAMINECTOMY SYNDROME
     Dosage: 100 MG TOPICALLY CHANGE Q 72 HRS
     Route: 061
     Dates: start: 20050514
  2. FENTANYL [Suspect]
     Indication: RADICULITIS
     Dosage: 100 MG TOPICALLY CHANGE Q 72 HRS
     Route: 061
     Dates: start: 20050514
  3. FENTANYL [Suspect]
     Indication: POST LAMINECTOMY SYNDROME
     Dosage: 100 MG TOPICALLY CHANGE Q 72 HRS
     Route: 061
     Dates: start: 20050614
  4. FENTANYL [Suspect]
     Indication: RADICULITIS
     Dosage: 100 MG TOPICALLY CHANGE Q 72 HRS
     Route: 061
     Dates: start: 20050614

REACTIONS (2)
  - INADEQUATE ANALGESIA [None]
  - PHARMACEUTICAL PRODUCT COMPLAINT [None]
